FAERS Safety Report 8221239-3 (Version None)
Quarter: 2012Q1

REPORT INFORMATION
  Report Type: 
  Country: None (occurrence: None)
  Receive Date: 20120320
  Receipt Date: 20120314
  Transmission Date: 20120608
  Serious: Yes (Other)
  Sender: FDA-Public Use
  Company Number: AT-COVIDIEN/TYCO HEALTHCARE/MALLINCKRODT-T201201052

PATIENT
  Age: 62 Year
  Sex: Female

DRUGS (17)
  1. DIAZEPAM [Suspect]
     Dosage: 2 X 5 MG, QD
  2. GABAPENTIN [Suspect]
     Indication: BONE PAIN
     Dosage: OVER 3 DAYS UP TO 900 MG PER DAY
  3. FENTANYL-100 [Suspect]
     Dosage: 75 UG/HR IN 72 HOURS
     Route: 062
  4. HYDROMORPHONE HCL [Suspect]
     Dosage: 5.2 MG
     Route: 048
  5. HYDROMORPHONE HCL [Suspect]
     Dosage: 20 MG TWICE PER DAY
  6. METAMIZOL                          /06276702/ [Concomitant]
     Dosage: 4 G, QD
  7. SIMVASTATIN [Concomitant]
     Dosage: 40 MG, QD
  8. ASPIRIN [Concomitant]
     Dosage: 100 MG, QD
  9. ALPRAZOLAM [Suspect]
     Dosage: 0.5 MG, QD
  10. LEVOTHYROXINE SODIUM [Concomitant]
     Dosage: 150 MG, QD
  11. METOPROLOL SUCCINATE [Concomitant]
     Dosage: 47.5 MG, QD
  12. ANASTROZOLE [Concomitant]
     Dosage: UNK UNK, QD
  13. POLYETHYLENE GLYCOL [Concomitant]
     Dosage: UNK, QD
  14. FENTANYL-100 [Suspect]
     Dosage: 150 UG/HR IN 72 HOURS
  15. FLUOXETINE [Suspect]
     Dosage: 40 MG, QD
  16. AMITRIPTYLINE HCL [Suspect]
     Dosage: 100 MG, QD
  17. NITROGLYCERIN [Concomitant]
     Dosage: UNK UNK, QD
     Route: 062

REACTIONS (1)
  - DELIRIUM [None]
